FAERS Safety Report 6992140-8 (Version None)
Quarter: 2010Q3

REPORT INFORMATION
  Report Type: 
  Country: None (occurrence: None)
  Receive Date: 20100917
  Receipt Date: 20100908
  Transmission Date: 20110219
  Serious: Yes (Other)
  Sender: FDA-Public Use
  Company Number: CHPA2010US13896

PATIENT
  Age: 23 Year
  Sex: Female
  Weight: 122.45 kg

DRUGS (2)
  1. EXCEDRIN (MIGRAINE) [Suspect]
     Indication: MIGRAINE
     Dosage: 1 DF, ONCE/SINGLE
     Route: 048
     Dates: start: 20100907, end: 20100907
  2. EXCEDRIN (MIGRAINE) [Suspect]
     Dosage: UNK, UNK

REACTIONS (3)
  - DYSPNOEA [None]
  - HYPERSENSITIVITY [None]
  - SWELLING FACE [None]
